FAERS Safety Report 12805909 (Version 1)
Quarter: 2016Q4

REPORT INFORMATION
  Report Type: Spontaneous
  Country: US (occurrence: US)
  Receive Date: 20161004
  Receipt Date: 20161004
  Transmission Date: 20170207
  Serious: No
  Sender: FDA-Public Use
  Company Number: US-PFIZER INC-2016458918

PATIENT
  Age: 23 Year
  Sex: Female

DRUGS (1)
  1. SUTENT [Suspect]
     Active Substance: SUNITINIB MALATE
     Indication: RENAL DISORDER
     Dosage: 50 MG, CYCLIC (28 DAYS FOLLOWED BY 14 DAYS OFF )
     Route: 048
     Dates: start: 201609

REACTIONS (4)
  - Ageusia [Recovered/Resolved]
  - Drug dose omission [Unknown]
  - Blood pressure increased [Unknown]
  - Product use issue [Unknown]

NARRATIVE: CASE EVENT DATE: 201609
